FAERS Safety Report 8454871-2 (Version None)
Quarter: 2012Q2

REPORT INFORMATION
  Report Type: 
  Country: None (occurrence: None)
  Receive Date: 20120621
  Receipt Date: 20120613
  Transmission Date: 20120825
  Serious: Yes (Hospitalization)
  Sender: FDA-Public Use
  Company Number: US-BAYER-2012-019484

PATIENT
  Age: 19 Year
  Sex: Female
  Weight: 52.154 kg

DRUGS (11)
  1. YAZ [Suspect]
     Indication: CONTRACEPTION
     Dosage: UNK
     Dates: start: 20050504, end: 20050928
  2. YASMIN [Suspect]
     Indication: ACNE
     Dosage: UNK
     Dates: start: 20091201
  3. OXYCODONE HCL AND ACETAMINOPHEN [Concomitant]
     Dosage: UNK
     Dates: start: 20090612
  4. YASMIN [Suspect]
     Indication: CONTRACEPTION
     Dosage: UNK
     Dates: start: 20050304, end: 20050504
  5. YASMIN [Suspect]
     Dosage: UNK
     Dates: start: 20100505, end: 20100909
  6. OXYCODONE HCL AND ACETAMINOPHEN [Concomitant]
     Dosage: UNK
     Dates: start: 20090702
  7. PROMETHAZINE [Concomitant]
     Dosage: 25 MG, UNK
     Dates: start: 20090703
  8. MUPIROCIN [Concomitant]
     Dosage: 2 %, UNK
     Dates: start: 20090720
  9. YAZ [Suspect]
     Indication: ACNE
     Dosage: UNK
     Dates: start: 20070608, end: 20080103
  10. DROSPIRENONE AND ETHINYL ESTRADIOL [Suspect]
  11. PROPOXYPHENE HCL AND ACETAMINOPHEN [Concomitant]
     Dosage: UNK
     Dates: start: 20090702

REACTIONS (8)
  - CHOLESTASIS [None]
  - INJURY [None]
  - NAUSEA [None]
  - DEPRESSION [None]
  - GALLBLADDER DISORDER [None]
  - PAIN [None]
  - ABDOMINAL PAIN UPPER [None]
  - CHOLECYSTITIS CHRONIC [None]
